FAERS Safety Report 5169279-5 (Version None)
Quarter: 2006Q4

REPORT INFORMATION
  Report Type: 
  Country: None (occurrence: None)
  Receive Date: 20061127
  Receipt Date: 20061114
  Transmission Date: 20070319
  Serious: Yes (Life-Threatening, Hospitalization, Disabling)
  Sender: FDA-Public Use
  Company Number: SK-2006-011062

PATIENT
  Age: 40 Year
  Sex: Female

DRUGS (3)
  1. ULTRAVIST 370 [Suspect]
     Indication: COMPUTERISED TOMOGRAM ABDOMEN
     Dosage: 100 ML, 1 DOSE, INTRAVENOUS
     Route: 042
     Dates: start: 20060505, end: 20060505
  2. ALGIFEN (PITOFENONE HYDROCHLORIDE, METAMIZOLE SODIUM MONOHYDRATE, FENP [Concomitant]
  3. HYOSCINE HBR HYT [Concomitant]

REACTIONS (5)
  - CIRCULATORY COLLAPSE [None]
  - CONVULSION [None]
  - DYSPNOEA [None]
  - RASH [None]
  - VOMITING [None]
